FAERS Safety Report 8891784 (Version 1)
Quarter: 2012Q4

REPORT INFORMATION
  Report Type: Spontaneous
  Country: US (occurrence: None)
  Receive Date: 20121031
  Receipt Date: 20121031
  Transmission Date: 20130627
  Serious: Yes (Other)
  Sender: FDA-Public Use
  Company Number: 2012AP003508

PATIENT
  Age: 57 Year
  Sex: Male

DRUGS (4)
  1. VERAPAMIL HYDROCHLORIDE [Suspect]
     Indication: DRUG USE FOR UNKNOWN INDICATION
  2. DABIGATRAN ETEXILATE [Suspect]
     Indication: PAROXYSMAL ATRIAL FIBRILLATION
  3. ASPIRIN [Concomitant]
  4. FLECAINIDE [Concomitant]

REACTIONS (4)
  - Carpal tunnel syndrome [None]
  - Haemorrhage [None]
  - Haematoma [None]
  - Drug interaction [None]
